FAERS Safety Report 16030500 (Version 2)
Quarter: 2019Q4

REPORT INFORMATION
  Report Type: Spontaneous
  Country: FR (occurrence: FR)
  Receive Date: 20190304
  Receipt Date: 20191016
  Transmission Date: 20200122
  Serious: Yes (Hospitalization, Other)
  Sender: FDA-Public Use
  Company Number: FR-PFIZER INC-2019086177

PATIENT
  Age: 65 Year
  Sex: Male
  Weight: 79 kg

DRUGS (6)
  1. DEPO-MEDROL [Suspect]
     Active Substance: METHYLPREDNISOLONE ACETATE
     Indication: ACUTE MYELOMONOCYTIC LEUKAEMIA
     Dosage: 40 MG, 1X/DAY
     Route: 024
     Dates: start: 20180614, end: 20180614
  2. CYTARABINE SANDOZ [Suspect]
     Active Substance: CYTARABINE
     Indication: ACUTE MYELOMONOCYTIC LEUKAEMIA
     Dosage: 400 MG, 1X/DAY
     Route: 042
     Dates: start: 20180619, end: 20180625
  3. METHOTREXATE BIODIM [Suspect]
     Active Substance: METHOTREXATE
     Indication: ACUTE MYELOMONOCYTIC LEUKAEMIA
     Dosage: 15 MG, 1X/DAY
     Route: 024
     Dates: start: 20180614, end: 20180614
  4. ARACYTINE [Suspect]
     Active Substance: CYTARABINE
     Indication: ACUTE MYELOMONOCYTIC LEUKAEMIA
     Dosage: 40 MG, 1X/DAY
     Route: 024
     Dates: start: 20180614, end: 20180614
  5. MYLOTARG [Suspect]
     Active Substance: GEMTUZUMAB OZOGAMICIN
     Indication: ACUTE MYELOMONOCYTIC LEUKAEMIA
     Dosage: 15 MG, CYCLIC
     Route: 041
     Dates: start: 20180619, end: 20180625
  6. CERUBIDINE [Suspect]
     Active Substance: DAUNORUBICIN HYDROCHLORIDE
     Indication: ACUTE MYELOMONOCYTIC LEUKAEMIA
     Dosage: 120 MG, 1X/DAY
     Route: 041
     Dates: start: 20180619, end: 20180621

REACTIONS (5)
  - Pseudomonal bacteraemia [Recovered/Resolved]
  - Off label use [Unknown]
  - Product use issue [Unknown]
  - Bone marrow failure [Recovered/Resolved]
  - Streptococcal bacteraemia [Recovered/Resolved]

NARRATIVE: CASE EVENT DATE: 20180621
